FAERS Safety Report 9757121 (Version 2)
Quarter: 2013Q4

REPORT INFORMATION
  Report Type: Spontaneous
  Country: US (occurrence: US)
  Receive Date: 20131213
  Receipt Date: 20131213
  Transmission Date: 20140711
  Serious: Yes (Death, Hospitalization)
  Sender: FDA-Public Use
  Company Number: US-LUNDBECK-DKLU1084753

PATIENT
  Sex: Male

DRUGS (5)
  1. SABRIL (FOR ORAL SOLUTION) [Suspect]
     Indication: COMPLEX PARTIAL SEIZURES
     Route: 048
     Dates: start: 20120910
  2. PENTOBARBITAL [Concomitant]
     Indication: PRODUCT USED FOR UNKNOWN INDICATION
  3. VERSED [Concomitant]
     Indication: PRODUCT USED FOR UNKNOWN INDICATION
  4. ANTIEPILEPTIC MEDICATIONS [Concomitant]
     Indication: PRODUCT USED FOR UNKNOWN INDICATION
  5. FOSPHENYTOIN [Concomitant]
     Indication: PRODUCT USED FOR UNKNOWN INDICATION

REACTIONS (2)
  - Coma [Fatal]
  - Status epilepticus [Unknown]
